FAERS Safety Report 6633626-5 (Version None)
Quarter: 2010Q1

REPORT INFORMATION
  Report Type: 
  Country: None (occurrence: None)
  Receive Date: 20100312
  Receipt Date: 20100302
  Transmission Date: 20100710
  Serious: Yes (Death, Other)
  Sender: FDA-Public Use
  Company Number: US-MERCK-0611USA06225

PATIENT
  Age: 54 Year
  Sex: Male

DRUGS (1)
  1. FOSAMAX [Suspect]
     Route: 048

REACTIONS (13)
  - ANXIETY [None]
  - DEATH [None]
  - GINGIVAL ABSCESS [None]
  - GINGIVAL BLEEDING [None]
  - INTERVERTEBRAL DISC PROTRUSION [None]
  - LUMBAR SPINAL STENOSIS [None]
  - METASTASES TO SPINE [None]
  - ORAL INFECTION [None]
  - OSTEONECROSIS [None]
  - PAIN IN EXTREMITY [None]
  - PERIODONTAL DISEASE [None]
  - PROSTATE CANCER METASTATIC [None]
  - TRIGGER FINGER [None]
